FAERS Safety Report 11030906 (Version 2)
Quarter: 2015Q2

REPORT INFORMATION
  Report Type: Report from Study
  Country: BR (occurrence: BR)
  Receive Date: 20150415
  Receipt Date: 20150417
  Transmission Date: 20150821
  Serious: No
  Sender: FDA-Public Use
  Company Number: BR-ABBVIE-15K-020-1374891-00

PATIENT
  Age: 60 Year
  Sex: Female
  Weight: 57 kg

DRUGS (11)
  1. OSTEOFORM [Concomitant]
     Indication: OSTEOPOROSIS PROPHYLAXIS
  2. LEVOTHYROXINE SODIUM. [Concomitant]
     Active Substance: LEVOTHYROXINE SODIUM
     Indication: HYPOTHYROIDISM
     Dates: end: 201411
  3. OSTEONUTRI [Concomitant]
  4. CYCLOBENZAPRINE [Concomitant]
     Active Substance: CYCLOBENZAPRINE
     Indication: SPINAL PAIN
     Dates: end: 201411
  5. LEVOTHYROXINE SODIUM. [Concomitant]
     Active Substance: LEVOTHYROXINE SODIUM
  6. CYCLOBENZAPRINE [Concomitant]
     Active Substance: CYCLOBENZAPRINE
  7. OSTEONUTRI [Concomitant]
     Indication: OSTEOPENIA
     Dates: start: 201411
  8. OSTEOFORM [Concomitant]
     Indication: OSTEOPENIA
     Dates: end: 201411
  9. ARAVA [Concomitant]
     Active Substance: LEFLUNOMIDE
     Indication: RHEUMATOID ARTHRITIS
  10. HUMIRA [Suspect]
     Active Substance: ADALIMUMAB
     Indication: PSORIATIC ARTHROPATHY
     Route: 058
     Dates: start: 20140912, end: 201411
  11. MELOXICAM. [Concomitant]
     Active Substance: MELOXICAM
     Indication: SPINAL PAIN
     Dates: end: 201411

REACTIONS (8)
  - Anxiety [Recovered/Resolved]
  - Nausea [Not Recovered/Not Resolved]
  - Asthenia [Recovered/Resolved]
  - Diarrhoea [Recovered/Resolved]
  - Immunodeficiency [Recovered/Resolved]
  - Malaise [Recovered/Resolved]
  - Vomiting [Recovered/Resolved]
  - Asthenia [Recovered/Resolved]

NARRATIVE: CASE EVENT DATE: 201411
